FAERS Safety Report 11332887 (Version 1)
Quarter: 2015Q3

REPORT INFORMATION
  Report Type: Spontaneous
  Country: DE (occurrence: DE)
  Receive Date: 20150803
  Receipt Date: 20150803
  Transmission Date: 20151125
  Serious: Yes (Hospitalization, Other)
  Sender: FDA-Public Use
  Company Number: DE-BAXALTA-2015BLT000749

PATIENT

DRUGS (3)
  1. IMMUNINE 600 IU [Suspect]
     Active Substance: FACTOR IX NOS
     Indication: FACTOR IX DEFICIENCY
     Dosage: 2400 IU, EVERY 2 DY
     Route: 065
  2. NOVO SEVEN [Concomitant]
     Active Substance: COAGULATION FACTOR VIIA (RECOMBINANT)
     Indication: PRODUCT USED FOR UNKNOWN INDICATION
     Route: 065
  3. IMMUNINE 600 IU [Suspect]
     Active Substance: FACTOR IX NOS
     Indication: PROPHYLAXIS

REACTIONS (2)
  - Coagulopathy [Unknown]
  - Drug ineffective [Unknown]
